FAERS Safety Report 6139160-3 (Version None)
Quarter: 2009Q2

REPORT INFORMATION
  Report Type: 
  Country: None (occurrence: None)
  Receive Date: 20090401
  Receipt Date: 20090319
  Transmission Date: 20091009
  Serious: Yes (Hospitalization, Other)
  Sender: FDA-Public Use
  Company Number: US-PFIZER INC-2009186739

PATIENT
  Sex: Female
  Weight: 61.234 kg

DRUGS (3)
  1. LYRICA [Suspect]
     Indication: FIBROMYALGIA
     Dates: start: 20081013, end: 20090101
  2. PLAVIX [Concomitant]
     Dosage: UNK
  3. VERAPAMIL [Concomitant]

REACTIONS (19)
  - ABASIA [None]
  - AMNESIA [None]
  - COGNITIVE DISORDER [None]
  - CONSTIPATION [None]
  - COORDINATION ABNORMAL [None]
  - DIZZINESS [None]
  - FAECAL INCONTINENCE [None]
  - FALL [None]
  - HEAD INJURY [None]
  - HYPOAESTHESIA [None]
  - LOSS OF CONSCIOUSNESS [None]
  - LUNG INFECTION [None]
  - MUSCLE SPASMS [None]
  - PAIN [None]
  - PARAESTHESIA [None]
  - SOMNOLENCE [None]
  - SPEECH DISORDER [None]
  - URINARY INCONTINENCE [None]
  - URINARY TRACT INFLAMMATION [None]
